FAERS Safety Report 8819939 (Version 1)
Quarter: 2012Q4

REPORT INFORMATION
  Report Type: 
  Country: US (occurrence: US)
  Receive Date: 20121001
  Receipt Date: 20121001
  Transmission Date: 20130627
  Serious: Yes (Hospitalization)
  Sender: FDA-Public Use
  Company Number: US-US-EMD SERONO, INC.-7002398

PATIENT
  Age: 33 Year
  Sex: Male

DRUGS (2)
  1. REBIF [Suspect]
     Indication: PRODUCT USED FOR UNKNOWN INDICATION
     Route: 058
     Dates: start: 20090518, end: 201002
  2. REBIF [Suspect]
     Route: 058
     Dates: start: 201003

REACTIONS (5)
  - Abdominal hernia [Unknown]
  - Muscle twitching [Unknown]
  - Migraine [Not Recovered/Not Resolved]
  - Muscle spasms [Unknown]
  - Headache [Not Recovered/Not Resolved]
